FAERS Safety Report 23137214 (Version 1)
Quarter: 2023Q4

REPORT INFORMATION
  Report Type: Spontaneous
  Country: US (occurrence: US)
  Receive Date: 20231102
  Receipt Date: 20231102
  Transmission Date: 20240109
  Serious: Yes (Other)
  Sender: FDA-Public Use
  Company Number: US-AMGEN-USASP2023192826

PATIENT

DRUGS (4)
  1. BEVACIZUMAB [Suspect]
     Active Substance: BEVACIZUMAB
     Indication: Glioblastoma
     Dosage: UNK
     Route: 065
  2. PANOBINOSTAT [Suspect]
     Active Substance: PANOBINOSTAT
     Indication: Glioblastoma
     Dosage: 60 MICROMETRE, QWK (INFUSED OVER 48HRS WEEKLY)
     Route: 036
  3. PANOBINOSTAT [Suspect]
     Active Substance: PANOBINOSTAT
     Dosage: 90 MICROMETRE, QWK
     Route: 036
  4. LOMUSTINE [Suspect]
     Active Substance: LOMUSTINE
     Indication: Glioblastoma
     Route: 065

REACTIONS (8)
  - Seizure [Unknown]
  - Hemiparesis [Unknown]
  - Wound infection fungal [Unknown]
  - Seroma [Unknown]
  - Cognitive disorder [Unknown]
  - Erythema [Unknown]
  - Contusion [Unknown]
  - Headache [Unknown]
